FAERS Safety Report 8481777-5 (Version None)
Quarter: 2012Q3

REPORT INFORMATION
  Report Type: 
  Country: None (occurrence: None)
  Receive Date: 20120702
  Receipt Date: 20120629
  Transmission Date: 20120928
  Serious: Yes (Other)
  Sender: FDA-Public Use
  Company Number: US-PFIZER INC-2012157478

PATIENT

DRUGS (1)
  1. NICOTROL [Suspect]
     Dosage: 1 BOX, AS DIRECTED
     Route: 055

REACTIONS (5)
  - TENDONITIS [None]
  - GASTROOESOPHAGEAL REFLUX DISEASE [None]
  - OSTEOPENIA [None]
  - HIATUS HERNIA [None]
  - CHRONIC OBSTRUCTIVE PULMONARY DISEASE [None]
